FAERS Safety Report 11338617 (Version 1)
Quarter: 2015Q3

REPORT INFORMATION
  Report Type: Spontaneous
  Country: US (occurrence: US)
  Receive Date: 20150803
  Receipt Date: 20150803
  Transmission Date: 20151125
  Serious: No
  Sender: FDA-Public Use
  Company Number: US-ELI_LILLY_AND_COMPANY-US200801000325

PATIENT
  Age: 35 Year
  Sex: Male

DRUGS (3)
  1. STRATTERA [Suspect]
     Active Substance: ATOMOXETINE HYDROCHLORIDE
     Indication: ATTENTION DEFICIT/HYPERACTIVITY DISORDER
     Dosage: 25 MG, 2/D
  2. STRATTERA [Suspect]
     Active Substance: ATOMOXETINE HYDROCHLORIDE
     Dosage: 40 MG, UNK
  3. STRATTERA [Suspect]
     Active Substance: ATOMOXETINE HYDROCHLORIDE
     Dosage: 18 MG, UNK

REACTIONS (27)
  - Groin pain [Unknown]
  - Gait disturbance [Unknown]
  - Asthenopia [Unknown]
  - Orgasm abnormal [Unknown]
  - Urinary incontinence [Unknown]
  - Memory impairment [Not Recovered/Not Resolved]
  - Bladder discomfort [Unknown]
  - Semen volume decreased [Unknown]
  - Burning sensation [Unknown]
  - Apathy [Unknown]
  - Irritability [Not Recovered/Not Resolved]
  - Penile pain [Unknown]
  - Semenuria [Unknown]
  - Dizziness [Unknown]
  - Balance disorder [Recovering/Resolving]
  - Depressed level of consciousness [Unknown]
  - Excessive eye blinking [Unknown]
  - Dysuria [Unknown]
  - Semen discolouration [Unknown]
  - Nausea [Unknown]
  - Hypoaesthesia [Unknown]
  - Somnolence [Not Recovered/Not Resolved]
  - Anxiety [Not Recovered/Not Resolved]
  - Genital burning sensation [Unknown]
  - Erectile dysfunction [Unknown]
  - Drug ineffective [Unknown]
  - Mental impairment [Not Recovered/Not Resolved]
